FAERS Safety Report 19315478 (Version 5)
Quarter: 2021Q3

REPORT INFORMATION
  Report Type: Spontaneous
  Country: US (occurrence: US)
  Receive Date: 20210527
  Receipt Date: 20210721
  Transmission Date: 20211014
  Serious: Yes (Hospitalization)
  Sender: FDA-Public Use
  Company Number: US-UNITED THERAPEUTICS-UNT-2021-009211

PATIENT
  Age: 5 Year
  Sex: Male
  Weight: 14.69 kg

DRUGS (4)
  1. REMODULIN [Suspect]
     Active Substance: TREPROSTINIL
     Indication: PULMONARY ARTERIAL HYPERTENSION
     Dosage: UNK, CONTINUING
     Route: 041
     Dates: start: 202105
  2. TRACLEER [Concomitant]
     Active Substance: BOSENTAN
     Indication: PRODUCT USED FOR UNKNOWN INDICATION
     Dosage: UNK
     Route: 065
  3. REMODULIN [Suspect]
     Active Substance: TREPROSTINIL
     Dosage: 0.046 ?G/KG, CONTINUING
     Route: 041
     Dates: start: 2021
  4. REMODULIN [Suspect]
     Active Substance: TREPROSTINIL
     Dosage: 0.040 ?G/KG, CONTINUING
     Route: 041
     Dates: start: 202105

REACTIONS (8)
  - Catheter site urticaria [Unknown]
  - Catheter site irritation [Unknown]
  - Catheter site oedema [Unknown]
  - Pleural effusion [Unknown]
  - Catheter site pruritus [Unknown]
  - Moaning [Unknown]
  - Fungal infection [Unknown]
  - Catheter site rash [Unknown]

NARRATIVE: CASE EVENT DATE: 2021
